FAERS Safety Report 13946216 (Version 1)
Quarter: 2017Q3

REPORT INFORMATION
  Report Type: Report from Study
  Country: GB (occurrence: GB)
  Receive Date: 20170907
  Receipt Date: 20170907
  Transmission Date: 20171128
  Serious: Yes (Other)
  Sender: FDA-Public Use
  Company Number: GB-ROCHE-1682262

PATIENT
  Sex: Female

DRUGS (1)
  1. ROACTEMRA [Suspect]
     Active Substance: TOCILIZUMAB
     Indication: RHEUMATOID ARTHRITIS
     Route: 058
     Dates: start: 20141229

REACTIONS (7)
  - Pain [Unknown]
  - Feeling abnormal [Unknown]
  - Nerve compression [Unknown]
  - Malaise [Unknown]
  - Arthritis [Unknown]
  - Gait inability [Unknown]
  - Back pain [Unknown]
